FAERS Safety Report 4306047-8 (Version None)
Quarter: 2004Q1

REPORT INFORMATION
  Report Type: 
  Country: None (occurrence: None)
  Receive Date: 20040225
  Receipt Date: 20030123
  Transmission Date: 20041129
  Serious: No
  Sender: FDA-Public Use
  Company Number: US-BRISTOL-MYERS SQUIBB COMPANY-12165650

PATIENT
  Age: 55 Year
  Sex: Male
  Weight: 77 kg

DRUGS (9)
  1. EXCEDRIN (MIGRAINE) [Suspect]
     Indication: PROPHYLAXIS
     Dosage: DOSE VALUE:  .5 TO 1 DOSAGE FORM.
     Route: 048
  2. PLAVIX [Concomitant]
  3. MAVIK [Concomitant]
  4. LIPITOR [Concomitant]
  5. TOPROL-XL [Concomitant]
     Dosage: DURATION OF THERAPY:  2 TO 3 YEARS
  6. IMITREX [Concomitant]
  7. TYLENOL (CAPLET) [Concomitant]
  8. HERBAL ONT [Concomitant]
  9. MULTIVITAMIN [Concomitant]

REACTIONS (1)
  - HAEMATOCHEZIA [None]
